FAERS Safety Report 10582704 (Version 4)
Quarter: 2014Q4

REPORT INFORMATION
  Report Type: Spontaneous
  Country: GB (occurrence: GB)
  Receive Date: 20141113
  Receipt Date: 20141223
  Transmission Date: 20150529
  Serious: Yes (Other)
  Sender: FDA-Public Use
  Company Number: GB-ABBVIE-14K-167-1307467-00

PATIENT
  Age: 57 Year
  Sex: Male
  Weight: 76 kg

DRUGS (1)
  1. HUMIRA [Suspect]
     Active Substance: ADALIMUMAB
     Indication: PSORIASIS
     Route: 058
     Dates: start: 20141021, end: 20141028

REACTIONS (17)
  - Pain in extremity [Unknown]
  - Ear pain [Recovering/Resolving]
  - Psoriasis [Recovering/Resolving]
  - Skin irritation [Unknown]
  - Hypersensitivity [Recovering/Resolving]
  - Skin fissures [Recovering/Resolving]
  - Peripheral swelling [Unknown]
  - Malaise [Unknown]
  - Hyperhidrosis [Unknown]
  - Haemorrhage [Unknown]
  - Inflammation [Recovering/Resolving]
  - Wound [Not Recovered/Not Resolved]
  - Tremor [Unknown]
  - Oedema [Unknown]
  - Dermatitis allergic [Recovering/Resolving]
  - Headache [Not Recovered/Not Resolved]
  - Impaired healing [Not Recovered/Not Resolved]

NARRATIVE: CASE EVENT DATE: 2014
